FAERS Safety Report 9099209 (Version 1)
Quarter: 2013Q1

REPORT INFORMATION
  Report Type: Spontaneous
  Country: US (occurrence: US)
  Receive Date: 20130214
  Receipt Date: 20130214
  Transmission Date: 20140127
  Serious: Yes (Other)
  Sender: FDA-Public Use
  Company Number: US-COVIDIEN/TYCO HEALTHCARE/MALLINCKRODT-T201300350

PATIENT
  Age: 53 Year
  Sex: Male
  Weight: 88.44 kg

DRUGS (1)
  1. FENTANYL TRANSDERMAL SYSTEM [Suspect]
     Indication: ARACHNOIDITIS
     Dosage: 75 MCG/HR, Q 3 DAYS
     Route: 062
     Dates: start: 20130117, end: 20130127

REACTIONS (3)
  - Toxicity to various agents [Recovered/Resolved]
  - Convulsions local [Recovered/Resolved]
  - Pruritus [Recovered/Resolved]
